FAERS Safety Report 4334179-7 (Version None)
Quarter: 2004Q2

REPORT INFORMATION
  Report Type: 
  Country: None (occurrence: None)
  Receive Date: 20040402
  Receipt Date: 20040325
  Transmission Date: 20050107
  Serious: Yes (Hospitalization)
  Sender: FDA-Public Use
  Company Number: STA-AE-04-MTX-122

PATIENT
  Age: 74 Year
  Sex: Male

DRUGS (4)
  1. RHEUMATREX [Suspect]
     Indication: RHEUMATOID ARTHRITIS
     Dosage: 4 MG 1X PER 1 WK, ORAL
     Route: 048
     Dates: start: 20000809, end: 20030918
  2. RHEUMATREX [Suspect]
     Indication: RHEUMATOID ARTHRITIS
     Dosage: 6 MG 1X PER 1 WK, ORAL
     Route: 048
     Dates: start: 20030918, end: 20040312
  3. LOXONIN (LOXOPROFEN SODIUM) [Concomitant]
  4. SELBEX (TEPRENONE) [Concomitant]

REACTIONS (2)
  - BONE MARROW DEPRESSION [None]
  - RESPIRATORY DISTRESS [None]
